FAERS Safety Report 6290078-5 (Version None)
Quarter: 2009Q3

REPORT INFORMATION
  Report Type: 
  Country: None (occurrence: None)
  Receive Date: 20090730
  Receipt Date: 20081126
  Transmission Date: 20100115
  Serious: Yes (Other)
  Sender: FDA-Public Use
  Company Number: US-BRISTOL-MYERS SQUIBB COMPANY-14403737

PATIENT
  Age: 76 Year
  Sex: Male
  Weight: 85 kg

DRUGS (4)
  1. COUMADIN [Suspect]
     Indication: CARDIOVERSION
     Dosage: 1MG FOR 4D+5MG ON 27OCT08;28-31OCT08:5MG QD;31OCT08:REDUCED TO 2.5MG QD;RESTARTED 2MG QD ON 20NOV08
     Dates: start: 20081022, end: 20081107
  2. BETAPACE [Concomitant]
  3. AVODART [Concomitant]
  4. FLOMAX [Concomitant]

REACTIONS (2)
  - EPISTAXIS [None]
  - INTERNATIONAL NORMALISED RATIO INCREASED [None]
